FAERS Safety Report 19219774 (Version 1)
Quarter: 2021Q2

REPORT INFORMATION
  Report Type: Spontaneous
  Country: NL (occurrence: NL)
  Receive Date: 20210506
  Receipt Date: 20210506
  Transmission Date: 20210717
  Serious: Yes (Other)
  Sender: FDA-Public Use
  Company Number: NL-AUROBINDO-AUR-APL-2021-018427

PATIENT
  Sex: Male

DRUGS (1)
  1. METRONIDAZOLE 10MG/G [Suspect]
     Active Substance: METRONIDAZOLE
     Indication: ROSACEA
     Dosage: 1 DOSAGE FORM, TWO TIMES A DAY
     Route: 065
     Dates: start: 20210309, end: 20210323

REACTIONS (1)
  - Conjunctival haemorrhage [Recovered/Resolved]
